FAERS Safety Report 9011908 (Version 1)
Quarter: 2012Q4

REPORT INFORMATION
  Report Type: Spontaneous
  Country: GB (occurrence: None)
  Receive Date: 20121228
  Receipt Date: 20121228
  Transmission Date: 20130627
  Serious: Yes (Death)
  Sender: FDA-Public Use
  Company Number: GER/GER/12/0027194

PATIENT
  Age: 23 Year
  Sex: Female

DRUGS (2)
  1. CIPROFLOXACIN (CIPROFLOXACIN) [Suspect]
     Indication: DRUG USE FOR UNKNOWN INDICATION
  2. TIGECYCLINE [Suspect]
     Indication: DRUG USE FOR UNKNOWN INDICATION

REACTIONS (2)
  - Coma hepatic [None]
  - Multi-organ failure [None]
